FAERS Safety Report 5600049-7 (Version None)
Quarter: 2008Q1

REPORT INFORMATION
  Report Type: 
  Country: None (occurrence: None)
  Receive Date: 20080123
  Receipt Date: 20080118
  Transmission Date: 20080703
  Serious: Yes (Other)
  Sender: FDA-Public Use
  Company Number: US-BRISTOL-MYERS SQUIBB COMPANY-14046189

PATIENT
  Age: 22 Year
  Sex: Female

DRUGS (1)
  1. ABILIFY [Suspect]

REACTIONS (3)
  - PREGNANCY [None]
  - PREMATURE LABOUR [None]
  - STILLBIRTH [None]
